FAERS Safety Report 5027801-3 (Version None)
Quarter: 2006Q2

REPORT INFORMATION
  Report Type: 
  Country: None (occurrence: None)
  Receive Date: 20060501
  Receipt Date: 20060125
  Transmission Date: 20061013
  Serious: No
  Sender: FDA-Public Use
  Company Number: 200518288US

PATIENT
  Age: 39 Year
  Sex: Female

DRUGS (13)
  1. KETEK [Suspect]
     Indication: ACUTE SINUSITIS
     Dosage: 400 MG PO
     Route: 048
     Dates: start: 20050927, end: 20050930
  2. NEXIUM [Concomitant]
  3. PEPCID [Concomitant]
  4. PSEUDOEPHEDRINE HYDROCHLORIDE, FEXOFENADINE (ALLEGRA-D) [Concomitant]
  5. MONTELUKAST SODIUM [Concomitant]
  6. SIBUTRAMINE HYDROCHLORIDE (MERIDIA) [Concomitant]
  7. HYOSCYAMINE SULFATE (LEVBID) [Concomitant]
  8. TRAZODONE HCL [Concomitant]
  9. FLUTICASONE PROPIONATE, SALMETEROL XINAFOATE (ADVAIR) [Concomitant]
  10. FLAXSEED OIL [Concomitant]
  11. XANAX [Concomitant]
  12. PARACETAMOL, TAMADOL HYDROCHLORIDE (ULTRACET) [Concomitant]
  13. HYDROCHLOROTHIAZIDE, TRIAMTERENE (DYAZIDE) [Concomitant]

REACTIONS (12)
  - DENTAL CARIES [None]
  - DRY MOUTH [None]
  - HEART RATE INCREASED [None]
  - NAUSEA [None]
  - OEDEMA MOUTH [None]
  - ORAL FUNGAL INFECTION [None]
  - PALPITATIONS [None]
  - SWELLING FACE [None]
  - SWOLLEN TONGUE [None]
  - VISION BLURRED [None]
  - VOMITING [None]
  - WEIGHT DECREASED [None]
